FAERS Safety Report 4751188-4 (Version None)
Quarter: 2005Q3

REPORT INFORMATION
  Report Type: 
  Country: None (occurrence: None)
  Receive Date: 20050822
  Receipt Date: 20050729
  Transmission Date: 20060218
  Serious: Yes (Life-Threatening, Hospitalization, Other)
  Sender: FDA-Public Use
  Company Number: 2005_000045

PATIENT
  Age: 17 Year
  Sex: Female
  Weight: 81 kg

DRUGS (3)
  1. DEPOCYT [Suspect]
     Indication: ANAPLASTIC CHOROID PLEXUS PAPILLOMA
     Dosage: X1; INTRATHECAL
     Route: 037
     Dates: start: 20050614, end: 20050701
  2. DEXAMETHASONE [Concomitant]
  3. JODID [Concomitant]

REACTIONS (5)
  - DEPRESSED LEVEL OF CONSCIOUSNESS [None]
  - DISTURBANCE IN ATTENTION [None]
  - GLASGOW COMA SCALE ABNORMAL [None]
  - INCONTINENCE [None]
  - SOMNOLENCE [None]
